FAERS Safety Report 15931394 (Version 20)
Quarter: 2021Q3

REPORT INFORMATION
  Report Type: Report from Study
  Country: None (occurrence: NL)
  Receive Date: 20190207
  Receipt Date: 20210728
  Transmission Date: 20211014
  Serious: Yes (Hospitalization, Other)
  Sender: FDA-Public Use
  Company Number: NL-ABBVIE-19S-114-2654599-00

PATIENT
  Sex: Female

DRUGS (14)
  1. DUODOPA [Suspect]
     Active Substance: CARBIDOPA\LEVODOPA
     Dosage: MD IS DECREASED AGAIN TO 5.4
     Route: 050
  2. DUODOPA [Suspect]
     Active Substance: CARBIDOPA\LEVODOPA
     Dosage: CD DECREASED FOR NIGHT FROM 2.4 TO 2.0 ED INCREASED TO 3.0 DAY MD: 5.1 NIGHT CD: 2.5
     Route: 050
  3. DUODOPA [Suspect]
     Active Substance: CARBIDOPA\LEVODOPA
     Dosage: MD: 3.4, CD: 3.7, ED: 3.0, CND: 2.7, END: 2.5
     Route: 050
  4. DUODOPA [Suspect]
     Active Substance: CARBIDOPA\LEVODOPA
     Dosage: MD 3.1 ML; CD 3.7 ML/H; ED 3.0 ML; END 2.5 ML; CD 2.7 ML/H
     Route: 050
  5. DUODOPA [Suspect]
     Active Substance: CARBIDOPA\LEVODOPA
     Dosage: MD 2.6 ML; CD 3.6 ML/H; ED 3.5 ML; END 2.5 ML; CND 2.7 ML/H
     Route: 050
  6. DUODOPA [Suspect]
     Active Substance: CARBIDOPA\LEVODOPA
     Dosage: MD: 6.4, CD: 3.6, ED: 2.5; 16 HOUR ADMINISTRATION
     Route: 050
  7. DUODOPA [Suspect]
     Active Substance: CARBIDOPA\LEVODOPA
     Dosage: PREVIOUS DOSE DECREASED MD 3.1 ML; CD 3.6 ML/H; ED 3.0 ML
     Route: 050
  8. ARTANE [Concomitant]
     Active Substance: TRIHEXYPHENIDYL HYDROCHLORIDE
     Indication: PRODUCT USED FOR UNKNOWN INDICATION
  9. DUODOPA [Suspect]
     Active Substance: CARBIDOPA\LEVODOPA
     Dosage: MD: 6.1, CD: 3.6, ED: 2.5; 24 HOUR ADMINISTRATION
     Route: 050
  10. DUODOPA [Suspect]
     Active Substance: CARBIDOPA\LEVODOPA
     Indication: PARKINSON^S DISEASE
     Dosage: DAY PUMP:MD 7.1 CD3.6 ED2.5?NIGHT PUMP: CD 1.8 ED 2.5
     Route: 050
     Dates: start: 20160711
  11. DUODOPA [Suspect]
     Active Substance: CARBIDOPA\LEVODOPA
     Dosage: MD DECREASED TO 6.9.
     Route: 050
  12. DUODOPA [Suspect]
     Active Substance: CARBIDOPA\LEVODOPA
     Dosage: MD DECREASED FROM 6.3 TO 5.9
     Route: 050
  13. DOMPERIDON [Concomitant]
     Active Substance: DOMPERIDONE
     Indication: PRODUCT USED FOR UNKNOWN INDICATION
  14. DUODOPA [Suspect]
     Active Substance: CARBIDOPA\LEVODOPA
     Dosage: CD NIGHT 2.0 ED INCREASED TO 3.0 DAY MD DECREASED FROM 5.1 TO 4.1, NIGHT CD: 2.5
     Route: 050

REACTIONS (52)
  - Hysterectomy [Recovered/Resolved]
  - Loss of personal independence in daily activities [Not Recovered/Not Resolved]
  - Stress [Not Recovered/Not Resolved]
  - Stoma site infection [Unknown]
  - Stoma site reaction [Not Recovered/Not Resolved]
  - Stoma site discomfort [Not Recovered/Not Resolved]
  - Speech disorder [Not Recovered/Not Resolved]
  - Thinking abnormal [Not Recovered/Not Resolved]
  - Impaired healing [Recovered/Resolved]
  - Muscle rigidity [Not Recovered/Not Resolved]
  - Drug ineffective [Unknown]
  - Stoma site inflammation [Recovered/Resolved]
  - Overweight [Not Recovered/Not Resolved]
  - Discomfort [Not Recovered/Not Resolved]
  - Tremor [Not Recovered/Not Resolved]
  - Unevaluable event [Unknown]
  - Stoma site haemorrhage [Recovered/Resolved]
  - On and off phenomenon [Recovering/Resolving]
  - Therapeutic product effect incomplete [Recovered/Resolved]
  - Anxiety [Not Recovered/Not Resolved]
  - Fibroma [Not Recovered/Not Resolved]
  - Dyschezia [Not Recovered/Not Resolved]
  - Affect lability [Not Recovered/Not Resolved]
  - Malaise [Recovered/Resolved]
  - Stoma site discomfort [Unknown]
  - Medical device pain [Recovered/Resolved]
  - Tension [Not Recovered/Not Resolved]
  - Initial insomnia [Not Recovered/Not Resolved]
  - Stoma site pain [Recovered/Resolved]
  - Restlessness [Not Recovered/Not Resolved]
  - Dyskinesia [Not Recovered/Not Resolved]
  - Stoma site discharge [Recovered/Resolved]
  - Depression [Not Recovered/Not Resolved]
  - Stoma site irritation [Not Recovered/Not Resolved]
  - Musculoskeletal stiffness [Not Recovered/Not Resolved]
  - Medical device site scab [Not Recovered/Not Resolved]
  - Abnormal dreams [Recovered/Resolved]
  - Fatigue [Not Recovered/Not Resolved]
  - Gait disturbance [Not Recovered/Not Resolved]
  - Stoma site erythema [Not Recovered/Not Resolved]
  - Stoma site discharge [Not Recovered/Not Resolved]
  - On and off phenomenon [Unknown]
  - Medical device removal [Not Recovered/Not Resolved]
  - Fibroma [Recovered/Resolved]
  - Mobility decreased [Unknown]
  - Malaise [Recovering/Resolving]
  - Pain [Not Recovered/Not Resolved]
  - Freezing phenomenon [Not Recovered/Not Resolved]
  - Insomnia [Not Recovered/Not Resolved]
  - Device breakage [Unknown]
  - Impaired quality of life [Unknown]
  - Freezing phenomenon [Recovered/Resolved]

NARRATIVE: CASE EVENT DATE: 2020
